APPROVED DRUG PRODUCT: SUS-PHRINE SULFITE FREE
Active Ingredient: EPINEPHRINE
Strength: 1.5MG/AMP
Dosage Form/Route: INJECTABLE;INJECTION
Application: N007942 | Product #003
Applicant: FOREST LABORATORIES INC
Approved: Feb 5, 1999 | RLD: No | RS: No | Type: DISCN